FAERS Safety Report 6413463-7 (Version None)
Quarter: 2009Q4

REPORT INFORMATION
  Report Type: 
  Country: None (occurrence: None)
  Receive Date: 20091026
  Receipt Date: 20091019
  Transmission Date: 20100525
  Serious: Yes (Hospitalization)
  Sender: FDA-Public Use
  Company Number: US-AVENTIS-200921852GDDC

PATIENT
  Age: 60 Year
  Sex: Female

DRUGS (4)
  1. TAXOTERE [Suspect]
     Dosage: DOSE: UNK
     Route: 042
     Dates: start: 20091006, end: 20091006
  2. CISPLATIN [Suspect]
     Dosage: DOSE: UNK
     Dates: start: 20091008, end: 20091008
  3. FLUOROURACIL [Suspect]
     Dosage: DOSE: UNK
     Dates: start: 20091006, end: 20091006
  4. LEUCOVORIN CALCIUM [Suspect]
     Dosage: DOSE: UNK
     Dates: start: 20091006

REACTIONS (5)
  - ABDOMINAL PAIN [None]
  - DECREASED APPETITE [None]
  - HYPONATRAEMIA [None]
  - NAUSEA [None]
  - VOMITING [None]
